FAERS Safety Report 6018832-5 (Version None)
Quarter: 2008Q4

REPORT INFORMATION
  Report Type: 
  Country: None (occurrence: None)
  Receive Date: 20081224
  Receipt Date: 20081219
  Transmission Date: 20090506
  Serious: Yes (Death, Other)
  Sender: FDA-Public Use
  Company Number: GB-RANBAXY-2008RR-15716

PATIENT
  Age: 64 Year
  Sex: Male

DRUGS (8)
  1. RANITIDINE [Suspect]
     Dosage: UNK
  2. CLOZAPINE [Suspect]
     Indication: SCHIZOPHRENIA
     Dosage: UNK
     Route: 048
     Dates: start: 20010701, end: 20040817
  3. ALBUTEROL SULFATE [Suspect]
  4. ZAPONEX [Suspect]
     Indication: SCHIZOPHRENIA
     Dosage: UNK
     Route: 048
     Dates: start: 20040818, end: 20060721
  5. VALPROIC ACID [Concomitant]
  6. EPILIM [Concomitant]
     Indication: CONVULSION
     Dosage: 1000 DF, QD
     Dates: start: 20010101
  7. RANITIDINE [Concomitant]
  8. ALBUTEROL SULFATE [Concomitant]
     Indication: CHRONIC OBSTRUCTIVE PULMONARY DISEASE

REACTIONS (3)
  - CARDIAC ARREST [None]
  - CIRCULATORY COLLAPSE [None]
  - DRUG INTERACTION [None]
